FAERS Safety Report 14554418 (Version 1)
Quarter: 2018Q1

REPORT INFORMATION
  Report Type: Spontaneous
  Country: US (occurrence: US)
  Receive Date: 20180220
  Receipt Date: 20180220
  Transmission Date: 20180509
  Serious: Yes (Hospitalization)
  Sender: FDA-Public Use
  Company Number: US-SA-2018SA037547

PATIENT
  Sex: Male

DRUGS (1)
  1. ASPERCREME HEAT [Suspect]
     Active Substance: MENTHOL
     Indication: ARTHRALGIA
     Route: 065

REACTIONS (2)
  - Cardiac failure [Unknown]
  - Product formulation issue [Unknown]

NARRATIVE: CASE EVENT DATE: 20171101
